FAERS Safety Report 7481797-3 (Version None)
Quarter: 2011Q2

REPORT INFORMATION
  Report Type: 
  Country: None (occurrence: None)
  Receive Date: 20110506
  Receipt Date: 20110428
  Transmission Date: 20111010
  Serious: Yes (Hospitalization)
  Sender: FDA-Public Use
  Company Number: DKLU1070214

PATIENT
  Age: 2 Year
  Sex: Female

DRUGS (6)
  1. ZONEGRAN [Concomitant]
  2. TOPAMAX [Concomitant]
  3. SABRIL [Suspect]
     Indication: INFANTILE SPASMS
     Dosage: 4 ML MILLIGRAM(S), 2 IN 1 D, ORAL
     Route: 048
     Dates: start: 20110101
  4. KLONOPIN [Concomitant]
  5. KEPPRA [Concomitant]
  6. RISPERDAL [Concomitant]

REACTIONS (1)
  - RESPIRATORY DISTRESS [None]
